FAERS Safety Report 13388808 (Version 2)
Quarter: 2017Q2

REPORT INFORMATION
  Report Type: Other
  Country: SE (occurrence: SE)
  Receive Date: 20170330
  Receipt Date: 20170413
  Transmission Date: 20170830
  Serious: Yes (Hospitalization)
  Sender: FDA-Public Use
  Company Number: SE-TAKEDA-2017TUS006076

PATIENT
  Age: 51 Year
  Sex: Female

DRUGS (4)
  1. OMECAT [Concomitant]
     Dosage: 20 MG, UNK
  2. GIONA EASYHALER [Concomitant]
     Dosage: 400 ?G, UNK
  3. ENTYVIO [Suspect]
     Active Substance: VEDOLIZUMAB
     Indication: CROHN^S DISEASE
     Dosage: 300 MG, UNK
     Route: 042
     Dates: start: 20151002, end: 20160504
  4. ASACOL [Concomitant]
     Active Substance: MESALAMINE
     Dosage: 800 MG, UNK

REACTIONS (1)
  - Pneumonia [Recovered/Resolved]

NARRATIVE: CASE EVENT DATE: 20160224
